FAERS Safety Report 8882021 (Version 1)
Quarter: 2012Q4

REPORT INFORMATION
  Report Type: 
  Country: TW (occurrence: TW)
  Receive Date: 20121102
  Receipt Date: 20121102
  Transmission Date: 20130627
  Serious: Yes (Hospitalization)
  Sender: FDA-Public Use
  Company Number: TW-FRI-1000039947

PATIENT
  Age: 47 Year
  Sex: Female

DRUGS (2)
  1. PROPRANOLOL ER 60 MG [Suspect]
  2. PROPYLTHIOURACIL [Suspect]
     Indication: BASEDOW^S DISEASE

REACTIONS (3)
  - Anti-neutrophil cytoplasmic antibody positive vasculitis [Unknown]
  - Exophthalmos [Unknown]
  - Goitre [Unknown]
